FAERS Safety Report 7264928-X (Version None)
Quarter: 2011Q1

REPORT INFORMATION
  Report Type: 
  Country: None (occurrence: None)
  Receive Date: 20110131
  Receipt Date: 20101123
  Transmission Date: 20110831
  Serious: Yes (Other)
  Sender: FDA-Public Use
  Company Number: US-BAYER-201038109NA

PATIENT
  Sex: Female
  Weight: 113.38 kg

DRUGS (13)
  1. YAZ [Suspect]
     Indication: ACNE
  2. YASMIN [Suspect]
     Indication: ACNE
     Dosage: UNK UNK, QD
     Dates: start: 20010101, end: 20030101
  3. CITALOPRAM [Concomitant]
     Indication: DEPRESSION
  4. LISINOPRIL [Concomitant]
  5. OCELLA [Suspect]
     Indication: ACNE
  6. DILTIAZEM [Concomitant]
     Indication: HYPERTENSION
  7. ADVIL [Concomitant]
     Indication: PAIN
  8. NEXIUM [Concomitant]
  9. TRIAMTERENE [Concomitant]
     Indication: DIURETIC THERAPY
  10. HYOSCYAMINE [Concomitant]
  11. YASMIN [Suspect]
     Indication: CONTRACEPTION
  12. LEVOTHYROXINE SODIUM [Concomitant]
     Indication: HYPOTHYROIDISM
  13. PROMETHAZINE [Concomitant]

REACTIONS (8)
  - NAUSEA [None]
  - DIARRHOEA [None]
  - VOMITING [None]
  - BILIARY COLIC [None]
  - DYSPEPSIA [None]
  - BACK PAIN [None]
  - CHOLECYSTITIS [None]
  - GALLBLADDER DISORDER [None]
